FAERS Safety Report 8774376 (Version 2)
Quarter: 2013Q4

REPORT INFORMATION
  Report Type: Spontaneous
  Country: FR (occurrence: FR)
  Receive Date: 20120907
  Receipt Date: 20131108
  Transmission Date: 20140711
  Serious: Yes (Death, Life-Threatening, Hospitalization)
  Sender: FDA-Public Use
  Company Number: FR-009507513-2012SP027374

PATIENT
  Age: 44 Year
  Sex: Female

DRUGS (5)
  1. ORGARAN [Suspect]
     Indication: HEPARIN-INDUCED THROMBOCYTOPENIA
     Dosage: 2000 IU, BID
     Route: 048
     Dates: start: 2008, end: 20120503
  2. ORGARAN [Suspect]
     Indication: ANTICOAGULANT THERAPY
  3. ASPEGIC [Suspect]
     Indication: CEREBRAL ISCHAEMIA
     Dosage: 100 MG, QD
     Route: 048
     Dates: end: 20120507
  4. ARGANOVA [Suspect]
     Indication: ANTICOAGULANT THERAPY
     Dosage: 2.4 ML, QH
     Route: 042
     Dates: start: 20120504
  5. ARGANOVA [Suspect]
     Dosage: 2. ML, QH
     Route: 042
     Dates: end: 20120505

REACTIONS (1)
  - Splenic haemorrhage [Fatal]
